FAERS Safety Report 5076375-X (Version None)
Quarter: 2006Q3

REPORT INFORMATION
  Report Type: 
  Country: None (occurrence: None)
  Receive Date: 20060807
  Receipt Date: 20060802
  Transmission Date: 20061208
  Serious: Yes (Death)
  Sender: FDA-Public Use
  Company Number: 2006-145889-NL

PATIENT
  Age: 75 Year
  Sex: Female

DRUGS (2)
  1. MIRTAZAPINE [Suspect]
     Indication: DEPRESSION
     Dosage: DF
     Route: 048
     Dates: start: 20060401
  2. THIAMAZOLE [Suspect]
     Indication: HYPERTHYROIDISM
     Dosage: DF
     Route: 048
     Dates: start: 20060401

REACTIONS (13)
  - AORTIC VALVE STENOSIS [None]
  - ATRIAL FIBRILLATION [None]
  - BLOOD PRESSURE FLUCTUATION [None]
  - BONE MARROW FAILURE [None]
  - BONE MARROW TOXICITY [None]
  - CEREBRAL INFARCTION [None]
  - LUMBAR VERTEBRAL FRACTURE [None]
  - MITRAL VALVE INCOMPETENCE [None]
  - PNEUMONIA [None]
  - PNEUMOTHORAX [None]
  - SEPSIS [None]
  - STENOTROPHOMONAS INFECTION [None]
  - TRICUSPID VALVE INCOMPETENCE [None]
